FAERS Safety Report 8190036-X (Version None)
Quarter: 2012Q1

REPORT INFORMATION
  Report Type: 
  Country: None (occurrence: None)
  Receive Date: 20120307
  Receipt Date: 20120228
  Transmission Date: 20120608
  Serious: Yes (Hospitalization)
  Sender: FDA-Public Use
  Company Number: FR-SANOFI-AVENTIS-2011SA054664

PATIENT
  Age: 69 Year
  Sex: Male
  Weight: 90 kg

DRUGS (16)
  1. POTASSIUM CHLORIDE [Concomitant]
  2. CALCIUM CARBONATE [Concomitant]
  3. ANDROCUR [Concomitant]
  4. ZOMETA [Concomitant]
     Route: 042
     Dates: start: 20110801, end: 20110801
  5. ZOFRAN [Concomitant]
  6. POLARAMINE [Concomitant]
     Route: 042
     Dates: start: 20110801, end: 20110801
  7. PREDNISOLONE [Concomitant]
  8. ACETAMINOPHEN [Concomitant]
  9. EMEND [Concomitant]
     Dosage: DOSE: 80-125 MG
     Route: 048
     Dates: start: 20110801, end: 20110803
  10. SOLU-MEDROL [Concomitant]
     Route: 042
     Dates: start: 20110801, end: 20110801
  11. ZANTAC [Concomitant]
  12. NEULASTA [Concomitant]
  13. QUININE AND DERIVATIVES [Concomitant]
  14. ESOMEPRAZOLE SODIUM [Concomitant]
  15. JEVTANA KIT [Suspect]
     Indication: PROSTATE CANCER
     Route: 042
     Dates: start: 20110801, end: 20110801
  16. JEVTANA KIT [Suspect]
     Route: 042
     Dates: start: 20110905, end: 20120110

REACTIONS (1)
  - COLD TYPE HAEMOLYTIC ANAEMIA [None]
